FAERS Safety Report 5266780-0 (Version None)
Quarter: 2007Q1

REPORT INFORMATION
  Report Type: 
  Country: None (occurrence: None)
  Receive Date: 20070312
  Receipt Date: 20070301
  Transmission Date: 20070707
  Serious: Yes (Other)
  Sender: FDA-Public Use
  Company Number: 237614

PATIENT
  Sex: Female

DRUGS (3)
  1. AVASTIN [Suspect]
     Indication: BREAST CANCER METASTATIC
  2. HERCEPTIN [Suspect]
     Indication: BREAST CANCER METASTATIC
  3. GEMCITABINE [Concomitant]

REACTIONS (1)
  - CARDIOTOXICITY [None]
